FAERS Safety Report 5370748-3 (Version None)
Quarter: 2007Q2

REPORT INFORMATION
  Report Type: 
  Country: None (occurrence: None)
  Receive Date: 20070618
  Receipt Date: 20070301
  Transmission Date: 20071010
  Serious: Yes (Other)
  Sender: FDA-Public Use
  Company Number: PHEH2006US12298

PATIENT
  Age: 83 Year
  Sex: Female

DRUGS (5)
  1. GLEEVEC [Suspect]
     Indication: GASTROINTESTINAL STROMAL TUMOUR
     Dosage: 400 MG, QD, ORAL
     Route: 048
     Dates: start: 20051201
  2. HYDROCHLOROTHIAZIDE [Concomitant]
  3. K-DUR 10 [Concomitant]
  4. NIZORAL [Concomitant]
  5. FLUOROURACIL SODIUM (FLUOROURACIL SODIUM) [Concomitant]

REACTIONS (13)
  - ECZEMA NUMMULAR [None]
  - GLAUCOMA [None]
  - INTRAOCULAR PRESSURE DECREASED [None]
  - LACRIMATION INCREASED [None]
  - LICHENOID KERATOSIS [None]
  - MUSCLE SPASMS [None]
  - PERIORBITAL OEDEMA [None]
  - PHOTODERMATOSIS [None]
  - PRURITUS [None]
  - RASH [None]
  - SEBORRHOEIC DERMATITIS [None]
  - TRABECULECTOMY [None]
  - URTICARIA [None]
